FAERS Safety Report 20219633 (Version 2)
Quarter: 2022Q2

REPORT INFORMATION
  Report Type: Spontaneous
  Country: US (occurrence: US)
  Receive Date: 20211222
  Receipt Date: 20220604
  Transmission Date: 20220721
  Serious: Yes (Other)
  Sender: FDA-Public Use
  Company Number: US-GILEAD-2021-0561975

PATIENT
  Sex: Male
  Weight: 113.38 kg

DRUGS (25)
  1. VIREAD [Suspect]
     Active Substance: TENOFOVIR DISOPROXIL FUMARATE
     Indication: HIV infection
     Dosage: UNK
     Route: 048
     Dates: start: 200210, end: 2017
  2. DESCOVY [Concomitant]
     Active Substance: EMTRICITABINE\TENOFOVIR ALAFENAMIDE FUMARATE
  3. EPIVIR [Concomitant]
     Active Substance: LAMIVUDINE
  4. VIRAMUNE [Concomitant]
     Active Substance: NEVIRAPINE
  5. ABILIFY [Concomitant]
     Active Substance: ARIPIPRAZOLE
  6. ALBUTEROL SULFATE [Concomitant]
     Active Substance: ALBUTEROL SULFATE
  7. BACLOFEN [Concomitant]
     Active Substance: BACLOFEN
  8. BOTOX [Concomitant]
     Active Substance: ONABOTULINUMTOXINA
  9. DOCUSATE SODIUM [Concomitant]
     Active Substance: DOCUSATE SODIUM
  10. FLOVENT HFA [Concomitant]
     Active Substance: FLUTICASONE PROPIONATE
  11. FLUTICASONE [Concomitant]
     Active Substance: FLUTICASONE
  12. FUROSEMIDE [Concomitant]
     Active Substance: FUROSEMIDE
  13. GABAPENTIN [Concomitant]
     Active Substance: GABAPENTIN
  14. IMITREX [Concomitant]
     Active Substance: SUMATRIPTAN SUCCINATE
  15. LINZESS [Concomitant]
     Active Substance: LINACLOTIDE
  16. METHYLPHENIDATE [Concomitant]
     Active Substance: METHYLPHENIDATE
  17. MIRALAX [Concomitant]
     Active Substance: POLYETHYLENE GLYCOL 3350
  18. MIRTAZAPINE [Concomitant]
     Active Substance: MIRTAZAPINE
  19. NARCAN [Concomitant]
     Active Substance: NALOXONE HYDROCHLORIDE
  20. OMEPRAZOLE [Concomitant]
     Active Substance: OMEPRAZOLE
  21. PANTOPRAZOLE [Concomitant]
     Active Substance: PANTOPRAZOLE
  22. PROAIR HFA [Concomitant]
     Active Substance: ALBUTEROL SULFATE
  23. QVAR REDIHALER [Concomitant]
     Active Substance: BECLOMETHASONE DIPROPIONATE
  24. ROSUVASTATIN [Concomitant]
     Active Substance: ROSUVASTATIN
  25. ZOLPIDEM [Concomitant]
     Active Substance: ZOLPIDEM TARTRATE

REACTIONS (9)
  - Osteoporosis [Not Recovered/Not Resolved]
  - Femur fracture [Not Recovered/Not Resolved]
  - Bone demineralisation [Unknown]
  - Lower limb fracture [Unknown]
  - Emotional distress [Not Recovered/Not Resolved]
  - Anhedonia [Not Recovered/Not Resolved]
  - Anxiety [Not Recovered/Not Resolved]
  - Pain [Not Recovered/Not Resolved]
  - Depression [Unknown]

NARRATIVE: CASE EVENT DATE: 20070101
